FAERS Safety Report 5802926-0 (Version None)
Quarter: 2008Q2

REPORT INFORMATION
  Report Type: 
  Country: None (occurrence: None)
  Receive Date: 20080627
  Receipt Date: 20080305
  Transmission Date: 20081010
  Serious: Yes (Disabling)
  Sender: FDA-Public Use
  Company Number: PHEH2008US01757

PATIENT
  Age: 72 Year
  Sex: Female
  Weight: 65.8 kg

DRUGS (7)
  1. RECLAST [Suspect]
     Indication: OSTEOPOROSIS
     Dosage: 5 MG, ONCE YEARLY, INTRAVENOUS
     Route: 042
     Dates: start: 20080109, end: 20080109
  2. PROZAC [Concomitant]
  3. NORVASC [Concomitant]
  4. CALCIUM (CALCIUM) [Concomitant]
  5. ASPIRIN [Concomitant]
  6. FISH OIL (FISH OIL) [Concomitant]
  7. GLUCOSAMINE W/CHONDROITIN (CHONDROITIN SULFATE, GLUCOSAMINE) [Concomitant]

REACTIONS (8)
  - ASTHENIA [None]
  - HYPERSOMNIA [None]
  - INFLUENZA LIKE ILLNESS [None]
  - NAUSEA [None]
  - OEDEMA PERIPHERAL [None]
  - PAIN IN EXTREMITY [None]
  - PYREXIA [None]
  - RASH [None]
